FAERS Safety Report 6126086-4 (Version None)
Quarter: 2009Q1

REPORT INFORMATION
  Report Type: 
  Country: None (occurrence: None)
  Receive Date: 20090320
  Receipt Date: 20090311
  Transmission Date: 20090719
  Serious: Yes (Death, Hospitalization)
  Sender: FDA-Public Use
  Company Number: DE-ELI_LILLY_AND_COMPANY-DE200903002645

PATIENT
  Age: 49 Year
  Sex: Male

DRUGS (4)
  1. CYMBALTA [Suspect]
     Route: 048
  2. JATROSOM [Interacting]
  3. CHLORALDURAT [Concomitant]
  4. ZOPICLON [Concomitant]

REACTIONS (2)
  - DRUG INTERACTION [None]
  - SEROTONIN SYNDROME [None]
